FAERS Safety Report 22040610 (Version 1)
Quarter: 2023Q1

REPORT INFORMATION
  Report Type: Spontaneous
  Country: US (occurrence: US)
  Receive Date: 20230227
  Receipt Date: 20230227
  Transmission Date: 20230417
  Serious: Yes (Hospitalization)
  Sender: FDA-Public Use
  Company Number: US-MEDEXUS PHARMA, INC.-2023MED00063

PATIENT
  Age: 5 Year
  Sex: Female

DRUGS (1)
  1. METHOTREXATE [Suspect]
     Active Substance: METHOTREXATE

REACTIONS (4)
  - Encephalopathy [Recovering/Resolving]
  - Intensive care unit delirium [Recovering/Resolving]
  - Toxicity to various agents [Recovered/Resolved]
  - Aspergillus infection [Unknown]
